FAERS Safety Report 19394843 (Version 1)
Quarter: 2021Q2

REPORT INFORMATION
  Report Type: Spontaneous
  Country: UA (occurrence: UA)
  Receive Date: 20210609
  Receipt Date: 20210609
  Transmission Date: 20210717
  Serious: Yes (Other)
  Sender: FDA-Public Use
  Company Number: UA-TEVA-2021-UA-1920689

PATIENT
  Age: 18 Year
  Sex: Female

DRUGS (1)
  1. SUMAMED [Suspect]
     Active Substance: AZITHROMYCIN ANHYDROUS
     Dosage: IN DOSE 1000 MG 1 DAY, FROM 2?5 DAY ? 500 MG PER DAY.
     Route: 065

REACTIONS (3)
  - Polyhydramnios [Unknown]
  - Maternal exposure during pregnancy [Unknown]
  - Live birth [Unknown]
